FAERS Safety Report 8461853-3 (Version None)
Quarter: 2012Q2

REPORT INFORMATION
  Report Type: 
  Country: None (occurrence: None)
  Receive Date: 20120625
  Receipt Date: 20120620
  Transmission Date: 20120825
  Serious: Yes (Life-Threatening, Hospitalization, Other)
  Sender: FDA-Public Use
  Company Number: US-ASTELLAS-2011US006284

PATIENT
  Sex: Female
  Weight: 82 kg

DRUGS (15)
  1. FLEXERIL [Concomitant]
     Indication: PRODUCT USED FOR UNKNOWN INDICATION
     Dosage: 2 MG, TID
     Route: 048
  2. COLACE [Concomitant]
     Indication: PRODUCT USED FOR UNKNOWN INDICATION
     Dosage: 100 MG, UID/QD
     Route: 048
  3. GABAPENTIN [Concomitant]
     Indication: PRODUCT USED FOR UNKNOWN INDICATION
     Dosage: 600 MG, TID
     Route: 048
  4. OXYCODONE HCL [Concomitant]
     Indication: PRODUCT USED FOR UNKNOWN INDICATION
     Dosage: 30 MG EVERY 4 HOURS
     Route: 048
  5. CYCLOBENZAPRINE [Concomitant]
     Indication: MUSCLE RELAXANT THERAPY
     Dosage: 10 MG, TID
     Route: 048
     Dates: start: 20090101
  6. PROAIR HFA [Concomitant]
     Indication: PRODUCT USED FOR UNKNOWN INDICATION
     Dosage: UNK
     Route: 065
  7. FOSAMAX [Concomitant]
     Indication: PRODUCT USED FOR UNKNOWN INDICATION
     Dosage: 70 MG, WEEKLY
     Route: 048
  8. ATIVAN [Concomitant]
     Indication: ANXIETY
     Dosage: 1 MG, TID
     Route: 048
     Dates: start: 19720101
  9. PROGRAF [Suspect]
     Indication: LIVER TRANSPLANT
     Dosage: 3 MG, BID
     Route: 048
     Dates: start: 19991201
  10. LORAZEPAM [Concomitant]
     Indication: PRODUCT USED FOR UNKNOWN INDICATION
     Dosage: 1 MG, 3XWEEKLY
     Route: 048
  11. ZOLPIDEM [Concomitant]
     Indication: INSOMNIA
     Dosage: 10 MG, UID/QD
     Route: 048
     Dates: start: 20100101
  12. TOPIRAMATE [Concomitant]
     Indication: CLUSTER HEADACHE
     Dosage: 50 MG, TID
     Route: 048
     Dates: start: 19970101
  13. PANTOPRAZOLE [Concomitant]
     Indication: ANTACID THERAPY
     Dosage: 40 MG, UID/QD
     Route: 048
     Dates: start: 19991201
  14. TOPAMAX [Concomitant]
     Indication: PRODUCT USED FOR UNKNOWN INDICATION
     Dosage: 50 MG, TID
     Route: 048
  15. BACTRIM [Concomitant]
     Indication: ANTIBIOTIC THERAPY
     Dosage: UNKNOWN MG ONCE DAILY
     Route: 048
     Dates: start: 19991201

REACTIONS (11)
  - OESOPHAGEAL VARICES HAEMORRHAGE [None]
  - PERONEAL NERVE PALSY [None]
  - APPARENT DEATH [None]
  - SEPSIS [None]
  - HAEMORRHAGE [None]
  - PAIN [None]
  - NEUROPATHY PERIPHERAL [None]
  - SURGERY [None]
  - SENSORY LOSS [None]
  - COMA [None]
  - BRAIN INJURY [None]
